FAERS Safety Report 7775447-6 (Version None)
Quarter: 2011Q3

REPORT INFORMATION
  Report Type: 
  Country: None (occurrence: None)
  Receive Date: 20110923
  Receipt Date: 20110920
  Transmission Date: 20111222
  Serious: Yes (Hospitalization, Other)
  Sender: FDA-Public Use
  Company Number: PHHY2009CA00903

PATIENT
  Sex: Female

DRUGS (2)
  1. ZOLEDRONOC ACID [Suspect]
     Indication: OSTEOPOROSIS
     Dosage: UNK UKN, UNK
     Dates: start: 20081124
  2. ZOLEDRONOC ACID [Suspect]
     Dosage: 5 MG
     Route: 042
     Dates: start: 20091216

REACTIONS (10)
  - SPINAL FRACTURE [None]
  - ARTHRALGIA [None]
  - BALANCE DISORDER [None]
  - INSOMNIA [None]
  - GAIT DISTURBANCE [None]
  - PAIN IN EXTREMITY [None]
  - FEELING HOT [None]
  - BACK PAIN [None]
  - MUSCULAR WEAKNESS [None]
  - BONE PAIN [None]
